FAERS Safety Report 10156051 (Version 2)
Quarter: 2014Q3

REPORT INFORMATION
  Report Type: Spontaneous
  Country: US (occurrence: US)
  Receive Date: 20140506
  Receipt Date: 20140812
  Transmission Date: 20150326
  Serious: No
  Sender: FDA-Public Use
  Company Number: US-GILEAD-2014-0101664

PATIENT
  Age: 57 Year
  Sex: Female

DRUGS (16)
  1. HYDRALAZINE [Concomitant]
     Active Substance: HYDRALAZINE HYDROCHLORIDE
  2. LETAIRIS [Suspect]
     Active Substance: AMBRISENTAN
     Indication: PORTOPULMONARY HYPERTENSION
     Dosage: 5 MG, QD
     Route: 065
     Dates: start: 20140408
  3. CALCIUM +D                         /00944201/ [Concomitant]
     Active Substance: CALCIUM\VITAMIN D
  4. THIAMINE [Concomitant]
     Active Substance: THIAMINE
  5. LANTUS [Concomitant]
     Active Substance: INSULIN GLARGINE
  6. ZINC SULFATE [Concomitant]
     Active Substance: ZINC SULFATE\ZINC SULFATE ANHYDROUS
  7. POTASSIUM [Concomitant]
     Active Substance: POTASSIUM
  8. ASPIRIN. [Concomitant]
     Active Substance: ASPIRIN
  9. FUROSEMIDE. [Concomitant]
     Active Substance: FUROSEMIDE
  10. METOPROLOL [Concomitant]
     Active Substance: METOPROLOL
  11. LISINOPRIL. [Concomitant]
     Active Substance: LISINOPRIL
  12. LACTULOSE. [Concomitant]
     Active Substance: LACTULOSE
  13. OMEPRAZOLE. [Concomitant]
     Active Substance: OMEPRAZOLE
  14. LEVOTHYROXINE [Concomitant]
     Active Substance: LEVOTHYROXINE
  15. TRAMADOL [Concomitant]
     Active Substance: TRAMADOL
  16. FLUOXETINE [Concomitant]
     Active Substance: FLUOXETINE\FLUOXETINE HYDROCHLORIDE

REACTIONS (1)
  - Headache [Recovered/Resolved]

NARRATIVE: CASE EVENT DATE: 20140415
